FAERS Safety Report 4637076-2 (Version None)
Quarter: 2005Q2

REPORT INFORMATION
  Report Type: 
  Country: None (occurrence: None)
  Receive Date: 20050325
  Receipt Date: 20041130
  Transmission Date: 20051028
  Serious: Yes (Hospitalization, Other)
  Sender: FDA-Public Use
  Company Number: USA040876300

PATIENT
  Age: 74 Year
  Sex: Female
  Weight: 61 kg

DRUGS (6)
  1. FORTEO [Suspect]
     Indication: OSTEOPOROSIS
     Dosage: 20 UG/1 DAY
     Dates: start: 20040714
  2. SYNTHROID [Concomitant]
  3. MIACALCIN [Concomitant]
  4. NORVASC [Concomitant]
  5. ULTRACET [Concomitant]
  6. CALTRATE + D [Concomitant]

REACTIONS (6)
  - ASTHENIA [None]
  - EYE SWELLING [None]
  - LACRIMATION INCREASED [None]
  - OCULAR HYPERAEMIA [None]
  - PNEUMONIA [None]
  - RASH [None]
